FAERS Safety Report 4450378-8 (Version None)
Quarter: 2004Q3

REPORT INFORMATION
  Report Type: 
  Country: None (occurrence: None)
  Receive Date: 20040914
  Receipt Date: 20040813
  Transmission Date: 20050211
  Serious: Yes (Hospitalization)
  Sender: FDA-Public Use
  Company Number: PHNU2004DE02865

PATIENT
  Sex: Female

DRUGS (5)
  1. LIORESAL [Suspect]
     Indication: QUADRIPARESIS
     Dosage: 600 NG/DAY; 150 NG/DAY; INTRATHECAL
     Route: 037
     Dates: start: 20040501, end: 20040501
  2. LIORESAL [Suspect]
     Indication: QUADRIPARESIS
     Dosage: 600 NG/DAY; 150 NG/DAY; INTRATHECAL
     Route: 037
     Dates: start: 20040501, end: 20040801
  3. VALPROATE SODIUM [Concomitant]
  4. TOPAMAX [Concomitant]
  5. SODIUM CHLORIDE 0.9% [Concomitant]

REACTIONS (1)
  - PYREXIA [None]
